FAERS Safety Report 6187274-4 (Version None)
Quarter: 2009Q2

REPORT INFORMATION
  Report Type: 
  Country: None (occurrence: None)
  Receive Date: 20090512
  Receipt Date: 20090505
  Transmission Date: 20091009
  Serious: Yes (Other)
  Sender: FDA-Public Use
  Company Number: US-CVT-090251

PATIENT

DRUGS (3)
  1. RANEXA [Suspect]
     Indication: ARRHYTHMIA PROPHYLAXIS
     Dosage: 1500 MG, SINGLE
     Dates: start: 20090401, end: 20090401
  2. RANEXA [Suspect]
     Indication: OFF LABEL USE
     Dosage: 1000 MG, BID
     Dates: start: 20090401, end: 20090401
  3. AMIODARONE                         /00133101/ [Concomitant]
     Dates: start: 20090401

REACTIONS (5)
  - CONVULSION [None]
  - DEPRESSED LEVEL OF CONSCIOUSNESS [None]
  - INCORRECT DOSE ADMINISTERED [None]
  - NYSTAGMUS [None]
  - RENAL IMPAIRMENT [None]
